FAERS Safety Report 19818234 (Version 1)
Quarter: 2021Q3

REPORT INFORMATION
  Report Type: Spontaneous
  Country: CA (occurrence: CA)
  Receive Date: 20210911
  Receipt Date: 20210911
  Transmission Date: 20211014
  Serious: Yes (Hospitalization)
  Sender: FDA-Public Use
  Company Number: CA-TEVA-2021-CA-1949626

PATIENT
  Age: 36 Year
  Sex: Male

DRUGS (7)
  1. LASIX [Concomitant]
     Active Substance: FUROSEMIDE
  2. NEXAVAR [Concomitant]
     Active Substance: SORAFENIB
  3. TYLENOL [Concomitant]
     Active Substance: ACETAMINOPHEN
  4. ETOPOSIDE. [Suspect]
     Active Substance: ETOPOSIDE
     Dosage: 388 MILLIGRAM DAILY;
  5. FRAGMIN [Concomitant]
     Active Substance: DALTEPARIN SODIUM
  6. CYTARABINE INJECTION [Suspect]
     Active Substance: CYTARABINE
     Dosage: 776 MILLIGRAM DAILY;
  7. PANTOLOC [Concomitant]
     Active Substance: PANTOPRAZOLE SODIUM

REACTIONS (3)
  - Febrile neutropenia [Unknown]
  - Bone marrow failure [Unknown]
  - Neutropenic colitis [Unknown]
